FAERS Safety Report 12578745 (Version 1)
Quarter: 2016Q3

REPORT INFORMATION
  Report Type: Spontaneous
  Country: US (occurrence: None)
  Receive Date: 20160720
  Receipt Date: 20160720
  Transmission Date: 20161109
  Serious: Yes (Life-Threatening)
  Sender: FDA-Public Use
  Company Number: None

PATIENT
  Age: 58 Year
  Sex: Female
  Weight: 94.35 kg

DRUGS (1)
  1. ZEPATIER [Suspect]
     Active Substance: ELBASVIR\GRAZOPREVIR
     Indication: HEPATITIS C
     Route: 048
     Dates: start: 20160531, end: 20160701

REACTIONS (3)
  - Blood HIV RNA below assay limit [None]
  - Blood creatine abnormal [None]
  - Glomerular filtration rate decreased [None]

NARRATIVE: CASE EVENT DATE: 20160630
